FAERS Safety Report 21546858 (Version 1)
Quarter: 2022Q4

REPORT INFORMATION
  Report Type: Spontaneous
  Country: NL (occurrence: NL)
  Receive Date: 20221103
  Receipt Date: 20221103
  Transmission Date: 20230112
  Serious: Yes (Life-Threatening, Hospitalization, Other)
  Sender: FDA-Public Use
  Company Number: NL-LRB-00840921

PATIENT
  Sex: Female
  Weight: 75 kg

DRUGS (2)
  1. ETHINYL ESTRADIOL\LEVONORGESTREL [Suspect]
     Active Substance: ETHINYL ESTRADIOL\LEVONORGESTREL
     Indication: Contraception
     Dosage: 1 DOSAGE FORM, ONCE A DAY (1 X 1)
     Route: 065
     Dates: start: 20090101
  2. NADROPARIN CALCIUM [Concomitant]
     Active Substance: NADROPARIN CALCIUM
     Indication: Product used for unknown indication
     Dosage: 9500 INTERNATIONAL UNIT PER MILLILITRE (INJECTIEVLOEISTOF, 9500 IE/ML (EENHEDEN PER MILLILITER)
     Route: 065

REACTIONS (1)
  - Portal vein thrombosis [Not Recovered/Not Resolved]
